FAERS Safety Report 8764044 (Version 2)
Quarter: 2012Q4

REPORT INFORMATION
  Report Type: 
  Country: CA (occurrence: CA)
  Receive Date: 20120831
  Receipt Date: 20120912
  Transmission Date: 20130627
  Serious: Yes (Death)
  Sender: FDA-Public Use
  Company Number: CA-JNJFOC-20120814066

PATIENT

DRUGS (46)
  1. DOXORUBICIN [Suspect]
     Indication: CHROMOSOME ANALYSIS ABNORMAL
     Dosage: day 1
     Route: 042
  2. DOXORUBICIN [Suspect]
     Indication: CHROMOSOME ANALYSIS ABNORMAL
     Dosage: day 0 and 1
     Route: 042
  3. DOXORUBICIN [Suspect]
     Indication: ACUTE LYMPHOCYTIC LEUKAEMIA
     Dosage: day 0 and 1
     Route: 042
  4. DOXORUBICIN [Suspect]
     Indication: ACUTE LYMPHOCYTIC LEUKAEMIA
     Dosage: day 1
     Route: 042
  5. IMATINIB [Suspect]
     Indication: CHROMOSOME ANALYSIS ABNORMAL
     Dosage: days 1-14
     Route: 048
  6. IMATINIB [Suspect]
     Indication: CHROMOSOME ANALYSIS ABNORMAL
     Dosage: days 2-14
     Route: 048
  7. IMATINIB [Suspect]
     Indication: ACUTE LYMPHOCYTIC LEUKAEMIA
     Dosage: days 1-14
     Route: 048
  8. IMATINIB [Suspect]
     Indication: ACUTE LYMPHOCYTIC LEUKAEMIA
     Dosage: days 2-14
     Route: 048
  9. PREDNISONE [Suspect]
     Indication: CHROMOSOME ANALYSIS ABNORMAL
     Dosage: days 0-28
     Route: 048
  10. PREDNISONE [Suspect]
     Indication: ACUTE LYMPHOCYTIC LEUKAEMIA
     Dosage: days 0-28
     Route: 048
  11. VINCRISTINE [Suspect]
     Indication: CHROMOSOME ANALYSIS ABNORMAL
     Dosage: Days 0, 7, 14, 21
     Route: 042
  12. VINCRISTINE [Suspect]
     Indication: CHROMOSOME ANALYSIS ABNORMAL
     Dosage: Day 1
     Route: 042
  13. VINCRISTINE [Suspect]
     Indication: ACUTE LYMPHOCYTIC LEUKAEMIA
     Dosage: Days 0, 7, 14, 21
     Route: 042
  14. VINCRISTINE [Suspect]
     Indication: ACUTE LYMPHOCYTIC LEUKAEMIA
     Dosage: Day 1
     Route: 042
  15. METHOTREXATE [Suspect]
     Indication: CHROMOSOME ANALYSIS ABNORMAL
     Dosage: over 1 hour
     Route: 042
  16. METHOTREXATE [Suspect]
     Indication: ACUTE LYMPHOCYTIC LEUKAEMIA
     Dosage: over 1 hour
     Route: 042
  17. METHOTREXATE [Suspect]
     Indication: CHROMOSOME ANALYSIS ABNORMAL
     Dosage: Days 1, 4, 8, 11
     Route: 037
  18. METHOTREXATE [Suspect]
     Indication: CHROMOSOME ANALYSIS ABNORMAL
     Dosage: days 0, 14
     Route: 037
  19. METHOTREXATE [Suspect]
     Indication: ACUTE LYMPHOCYTIC LEUKAEMIA
     Dosage: days 0, 14
     Route: 037
  20. METHOTREXATE [Suspect]
     Indication: ACUTE LYMPHOCYTIC LEUKAEMIA
     Dosage: Days 1, 4, 8, 11
     Route: 037
  21. ASPARAGINASE [Suspect]
     Indication: CHROMOSOME ANALYSIS ABNORMAL
     Dosage: 25000 IU/m2, on day 4
     Route: 030
  22. ASPARAGINASE [Suspect]
     Indication: ACUTE LYMPHOCYTIC LEUKAEMIA
     Dosage: 25000 IU/m2, on day 4
     Route: 030
  23. LEUCOVORIN [Suspect]
     Indication: CHROMOSOME ANALYSIS ABNORMAL
     Dosage: over 1 hour
     Route: 042
  24. LEUCOVORIN [Suspect]
     Indication: ACUTE LYMPHOCYTIC LEUKAEMIA
     Dosage: over 1 hour
     Route: 042
  25. CYTARABINE [Suspect]
     Indication: CHROMOSOME ANALYSIS ABNORMAL
     Dosage: Days 1, 4, 8, 11
     Route: 037
  26. CYTARABINE [Suspect]
     Indication: CHROMOSOME ANALYSIS ABNORMAL
     Dosage: days 0, 14
     Route: 037
  27. CYTARABINE [Suspect]
     Indication: ACUTE LYMPHOCYTIC LEUKAEMIA
     Dosage: Days 1, 4, 8, 11
     Route: 037
  28. CYTARABINE [Suspect]
     Indication: ACUTE LYMPHOCYTIC LEUKAEMIA
     Dosage: days 0, 14
     Route: 037
  29. HYDROCORTISONE [Suspect]
     Indication: CHROMOSOME ANALYSIS ABNORMAL
     Dosage: Days 1, 4, 8, 11
     Route: 037
  30. HYDROCORTISONE [Suspect]
     Indication: CHROMOSOME ANALYSIS ABNORMAL
     Dosage: days 0, 14
     Route: 037
  31. HYDROCORTISONE [Suspect]
     Indication: ACUTE LYMPHOCYTIC LEUKAEMIA
     Dosage: days 0, 14
     Route: 037
  32. HYDROCORTISONE [Suspect]
     Indication: ACUTE LYMPHOCYTIC LEUKAEMIA
     Dosage: Days 1, 4, 8, 11
     Route: 037
  33. 6-MERCAPTOPURINE [Suspect]
     Indication: CHROMOSOME ANALYSIS ABNORMAL
     Dosage: days 1-14
     Route: 048
  34. 6-MERCAPTOPURINE [Suspect]
     Indication: ACUTE LYMPHOCYTIC LEUKAEMIA
     Dosage: days 1-14
     Route: 048
  35. RADIATION THERAPY [Suspect]
     Indication: CHROMOSOME ANALYSIS ABNORMAL
     Dosage: 1200 cGy, over 8 days
     Route: 065
  36. RADIATION THERAPY [Suspect]
     Indication: ACUTE LYMPHOCYTIC LEUKAEMIA
     Dosage: 1200 cGy, over 8 days
     Route: 065
  37. FLUCONAZOLE [Concomitant]
     Indication: ANTIFUNGAL PROPHYLAXIS
     Route: 065
  38. TRIMETHOPRIM AND SULFAMETHOXAZOLE [Concomitant]
     Indication: ANTIFUNGAL PROPHYLAXIS
     Route: 065
  39. PENTAMIDINE [Concomitant]
     Indication: ANTIFUNGAL PROPHYLAXIS
     Route: 055
  40. CALCIUM AND VITAMIN D [Concomitant]
     Indication: PROPHYLAXIS
     Route: 065
  41. ALENDRONATE [Concomitant]
     Indication: PROPHYLAXIS
     Route: 065
  42. RISEDRONATE [Concomitant]
     Indication: PROPHYLAXIS
     Route: 065
  43. DOXORUBICIN [Suspect]
     Indication: CHROMOSOME ANALYSIS ABNORMAL
     Dosage: day 1
     Route: 042
  44. DOXORUBICIN [Suspect]
     Indication: CHROMOSOME ANALYSIS ABNORMAL
     Dosage: day 0 and 1
     Route: 042
  45. DOXORUBICIN [Suspect]
     Indication: ACUTE LYMPHOCYTIC LEUKAEMIA
     Dosage: day 1
     Route: 042
  46. DOXORUBICIN [Suspect]
     Indication: ACUTE LYMPHOCYTIC LEUKAEMIA
     Dosage: day 0 and 1
     Route: 042

REACTIONS (2)
  - Subdural haematoma [Fatal]
  - Off label use [Unknown]
